FAERS Safety Report 9655818 (Version 1)
Quarter: 2013Q4

REPORT INFORMATION
  Report Type: Spontaneous
  Country: US (occurrence: US)
  Receive Date: 20131030
  Receipt Date: 20131030
  Transmission Date: 20140711
  Serious: No
  Sender: FDA-Public Use
  Company Number: US-BIOGENIDEC-2013BI103276

PATIENT
  Sex: Female
  Weight: 69 kg

DRUGS (18)
  1. AVONEX [Suspect]
     Indication: MULTIPLE SCLEROSIS
     Route: 030
     Dates: start: 20121228
  2. AVONEX [Suspect]
     Indication: MULTIPLE SCLEROSIS
     Route: 030
     Dates: start: 20130822
  3. RESTORIL [Concomitant]
     Indication: SLEEP DISORDER
     Route: 048
     Dates: start: 20100223
  4. MICROQESTIN [Concomitant]
     Route: 048
  5. MICROQESTIN [Concomitant]
     Route: 048
  6. CRESTOR [Concomitant]
     Route: 048
  7. ALENDRONATE SODIUM [Concomitant]
     Route: 048
  8. XYZAL [Concomitant]
     Route: 048
  9. NASONEX [Concomitant]
     Route: 045
  10. BEPREVE [Concomitant]
     Route: 047
  11. SYNTHROID [Concomitant]
  12. LOESTRIN, FE 1-20 [Concomitant]
  13. NAPRELAN [Concomitant]
  14. ZYRTEC [Concomitant]
  15. FOSAMAX [Concomitant]
  16. AMBIEN [Concomitant]
  17. PROVENTIL [Concomitant]
  18. PATADAY [Concomitant]

REACTIONS (2)
  - Large intestine polyp [Unknown]
  - Insomnia [Unknown]
